FAERS Safety Report 25387139 (Version 2)
Quarter: 2025Q2

REPORT INFORMATION
  Report Type: Report from Study
  Country: US (occurrence: US)
  Receive Date: 20250602
  Receipt Date: 20250624
  Transmission Date: 20250716
  Serious: Yes (Other)
  Sender: ALEXION PHARMACEUTICALS
  Company Number: US-AstraZeneca-CH-00878891A

PATIENT

DRUGS (2)
  1. ULTOMIRIS [Suspect]
     Active Substance: RAVULIZUMAB-CWVZ
     Indication: Neuromyelitis optica spectrum disorder
     Dosage: UNK, Q8W
  2. MORPHINE [Suspect]
     Active Substance: MORPHINE

REACTIONS (7)
  - Autoimmune disorder [Unknown]
  - Optic neuritis [Unknown]
  - Migraine [Not Recovered/Not Resolved]
  - Gastritis [Unknown]
  - Bladder disorder [Unknown]
  - Administration site pruritus [Unknown]
  - Gastrointestinal disorder [Unknown]
